FAERS Safety Report 11181395 (Version 1)
Quarter: 2015Q2

REPORT INFORMATION
  Report Type: Spontaneous
  Country: US (occurrence: None)
  Receive Date: 20150610
  Receipt Date: 20150610
  Transmission Date: 20150821
  Serious: Yes (Other)
  Sender: FDA-Public Use
  Company Number: None

PATIENT
  Age: 76 Year
  Sex: Female
  Weight: 57.15 kg

DRUGS (5)
  1. MYRBETRIQ [Suspect]
     Active Substance: MIRABEGRON
     Indication: NOCTURIA
     Route: 048
     Dates: start: 20150405, end: 20150504
  2. METOPROLOL [Concomitant]
     Active Substance: METOPROLOL
  3. SYNTHROID [Concomitant]
     Active Substance: LEVOTHYROXINE SODIUM
  4. MAVIK [Concomitant]
     Active Substance: TRANDOLAPRIL
  5. CENTRUM [Suspect]
     Active Substance: VITAMINS

REACTIONS (1)
  - Renal impairment [None]

NARRATIVE: CASE EVENT DATE: 20150506
